FAERS Safety Report 5881019-0 (Version None)
Quarter: 2008Q3

REPORT INFORMATION
  Report Type: 
  Country: None (occurrence: None)
  Receive Date: 20080911
  Receipt Date: 20080904
  Transmission Date: 20090109
  Serious: Yes (Hospitalization)
  Sender: FDA-Public Use
  Company Number: CERZ-1000363

PATIENT
  Age: 4 Year

DRUGS (5)
  1. CEREZYME [Suspect]
     Indication: GAUCHER'S DISEASE
     Dosage: 1400 U, Q2W, INTRAVENOUS, 1200 U, Q2W; INTRAVENOUS, 120 U/KG, Q2W; INTRAVENOUS, 200 U, Q4W, INTRAVEN
     Route: 042
     Dates: start: 20040212, end: 20040101
  2. CEREZYME [Suspect]
     Indication: GAUCHER'S DISEASE
     Dosage: 1400 U, Q2W, INTRAVENOUS, 1200 U, Q2W; INTRAVENOUS, 120 U/KG, Q2W; INTRAVENOUS, 200 U, Q4W, INTRAVEN
     Route: 042
     Dates: start: 20040506, end: 20050101
  3. CEREZYME [Suspect]
     Indication: GAUCHER'S DISEASE
     Dosage: 1400 U, Q2W, INTRAVENOUS, 1200 U, Q2W; INTRAVENOUS, 120 U/KG, Q2W; INTRAVENOUS, 200 U, Q4W, INTRAVEN
     Route: 042
     Dates: start: 20051013, end: 20060101
  4. CEREZYME [Suspect]
     Indication: GAUCHER'S DISEASE
     Dosage: 1400 U, Q2W, INTRAVENOUS, 1200 U, Q2W; INTRAVENOUS, 120 U/KG, Q2W; INTRAVENOUS, 200 U, Q4W, INTRAVEN
     Route: 042
     Dates: start: 20060522, end: 20070101
  5. CEREZYME [Suspect]
     Indication: GAUCHER'S DISEASE
     Dosage: 1400 U, Q2W, INTRAVENOUS, 1200 U, Q2W; INTRAVENOUS, 120 U/KG, Q2W; INTRAVENOUS, 200 U, Q4W, INTRAVEN
     Route: 042
     Dates: start: 20070226

REACTIONS (2)
  - PNEUMONIA ASPIRATION [None]
  - TUBERCULOSIS [None]
